FAERS Safety Report 6876016-2 (Version None)
Quarter: 2010Q3

REPORT INFORMATION
  Report Type: 
  Country: None (occurrence: None)
  Receive Date: 20100727
  Receipt Date: 20070917
  Transmission Date: 20110219
  Serious: Yes (Death, Hospitalization)
  Sender: FDA-Public Use
  Company Number: US-PFIZER INC-2006012129

PATIENT
  Sex: Female
  Weight: 76.2 kg

DRUGS (6)
  1. CELEBREX [Suspect]
     Indication: OSTEOARTHRITIS
     Route: 048
     Dates: start: 19990301, end: 20041008
  2. VIOXX [Suspect]
     Indication: OSTEOARTHRITIS
     Dosage: 1-2X
     Route: 048
     Dates: start: 19990625, end: 20040930
  3. APAP TAB [Concomitant]
     Dates: start: 19990401, end: 20041001
  4. HYZAAR [Concomitant]
     Dates: start: 20040501, end: 20041001
  5. NORVASC [Concomitant]
     Dates: start: 20040501, end: 20041001
  6. LIPITOR [Concomitant]
     Dates: start: 20020201, end: 20041001

REACTIONS (1)
  - CEREBROVASCULAR ACCIDENT [None]
